FAERS Safety Report 17519633 (Version 1)
Quarter: 2020Q1

REPORT INFORMATION
  Report Type: Spontaneous
  Country: CN (occurrence: CN)
  Receive Date: 20200310
  Receipt Date: 20200310
  Transmission Date: 20200409
  Serious: Yes (Hospitalization)
  Sender: FDA-Public Use
  Company Number: CN-BAXTER-2020BAX005281

PATIENT
  Age: 43 Year
  Sex: Female
  Weight: 55 kg

DRUGS (4)
  1. 5% GLUCOSE  INJECTION [Suspect]
     Active Substance: DEXTROSE
     Indication: MEDICATION DILUTION
     Dosage: DOXORUBICIN HYDROCHLORIDE LIPOSOME 40 MG + 5% GLUCOSE 100 ML, ELECTRONIC PUMP 24H
     Route: 042
     Dates: start: 20200207, end: 20200207
  2. DOXORUBICIN HYDROCHLORIDE LIPOSOME [Suspect]
     Active Substance: DOXORUBICIN HYDROCHLORIDE
     Indication: BREAST CANCER
     Dosage: DOXORUBICIN HYDROCHLORIDE LIPOSOME 40 MG + 5% GLUCOSE 100 ML, ELECTRONIC PUMP 24H
     Route: 042
     Dates: start: 20200207, end: 20200207
  3. HOLOXAN [Suspect]
     Active Substance: IFOSFAMIDE
     Indication: BREAST CANCER
     Dosage: HOLOXAN 3 G + 0.9% SODIUM CHLORIDE 500 ML, D1-4
     Route: 041
     Dates: start: 20200207, end: 20200210
  4. 0.9% SODIUM CHLORIDE INJECTION [Suspect]
     Active Substance: SODIUM CHLORIDE
     Indication: MEDICATION DILUTION
     Dosage: HOLOXAN 3 G + 0.9% SODIUM CHLORIDE 500ML, D1-4
     Route: 041
     Dates: start: 20200207, end: 20200210

REACTIONS (1)
  - Bone marrow failure [Recovered/Resolved]

NARRATIVE: CASE EVENT DATE: 20200218
